FAERS Safety Report 10103549 (Version 1)
Quarter: 2014Q2

REPORT INFORMATION
  Report Type: Spontaneous
  Country: US (occurrence: US)
  Receive Date: 20140424
  Receipt Date: 20140424
  Transmission Date: 20141212
  Serious: No
  Sender: FDA-Public Use
  Company Number: US-BRISTOL-MYERS SQUIBB COMPANY-20547980

PATIENT
  Age: 83 Year
  Sex: Female

DRUGS (11)
  1. ELIQUIS [Suspect]
     Indication: CEREBROVASCULAR ACCIDENT PROPHYLAXIS
     Dates: start: 20140317
  2. PROVENTIL [Concomitant]
     Dosage: TABS
  3. DUONEB [Concomitant]
     Dosage: NEBULIZER
     Route: 045
  4. XANAX [Concomitant]
     Dosage: 1DF:25 UNIT NOS
  5. OSCAL D [Concomitant]
  6. FERROUS SULFATE [Concomitant]
     Dosage: 1DF:325 UNIT NOS
  7. FOLIC ACID [Concomitant]
  8. LASIX [Concomitant]
     Dosage: 1DF:20 UNIT NOS
  9. FLOMAX [Concomitant]
     Dosage: TABS
  10. TOPROL XL [Concomitant]
     Dosage: 1DF:25 UNIT NOS
  11. PRILOSEC [Concomitant]
     Dosage: 1DF:40 UNIT NOS

REACTIONS (1)
  - Diarrhoea [Unknown]
